FAERS Safety Report 10286422 (Version 1)
Quarter: 2014Q3

REPORT INFORMATION
  Report Type: Spontaneous
  Country: US (occurrence: US)
  Receive Date: 20140709
  Receipt Date: 20140709
  Transmission Date: 20150326
  Serious: No
  Sender: FDA-Public Use
  Company Number: US-PFIZER INC-2014185032

PATIENT
  Age: 69 Year
  Sex: Female

DRUGS (1)
  1. SUTENT [Suspect]
     Active Substance: SUNITINIB MALATE
     Dosage: 37.5 MG, CYCLIC (37.5 MG DAILY FOR 2 WEEKS ON AND 1 WEEK OFF)
     Dates: start: 2014

REACTIONS (3)
  - Ageusia [Unknown]
  - Decreased appetite [Unknown]
  - Skin exfoliation [Unknown]
